FAERS Safety Report 17428604 (Version 1)
Quarter: 2020Q1

REPORT INFORMATION
  Report Type: Spontaneous
  Country: FR (occurrence: FR)
  Receive Date: 20200217
  Receipt Date: 20200217
  Transmission Date: 20200409
  Serious: Yes (Hospitalization, Other)
  Sender: FDA-Public Use
  Company Number: FR-US-PROVELL PHARMACEUTICALS LLC-9015530

PATIENT
  Age: 47 Year
  Sex: Female

DRUGS (14)
  1. COLLUDOL [Concomitant]
     Indication: GASTROENTERITIS
  2. PARACETAMOL [Concomitant]
     Active Substance: ACETAMINOPHEN
     Indication: GASTROENTERITIS
     Dosage: PARACETAMOL 500
  3. SYMBICORT [Concomitant]
     Active Substance: BUDESONIDE\FORMOTEROL FUMARATE DIHYDRATE
     Indication: CONJUNCTIVITIS
     Dosage: 202 (UNSPECIFIED UNITS)
  4. LEVOTHYROX 75 NF [Suspect]
     Active Substance: LEVOTHYROXINE SODIUM
     Indication: HYPOTHYROIDISM
     Dates: start: 20170405, end: 2017
  5. LEVOTHYROX 50 NF [Suspect]
     Active Substance: LEVOTHYROXINE
     Indication: HYPOTHYROIDISM
     Dosage: THERAPY START DATE: 03-SEP-2017
     Dates: end: 20170910
  6. TIORFANOR [Concomitant]
     Active Substance: RACECADOTRIL
     Indication: GASTROENTERITIS
  7. MIRENA [Concomitant]
     Active Substance: LEVONORGESTREL
     Indication: INTRAUTERINE CONTRACEPTION
     Dosage: INTRA-UTERINE DEVICE
  8. AERIUS                             /01009701/ [Concomitant]
     Active Substance: EBASTINE
     Indication: CONJUNCTIVITIS
     Dosage: 100 (UNSPECIFIED UNITS)
  9. SYMBICORT [Concomitant]
     Active Substance: BUDESONIDE\FORMOTEROL FUMARATE DIHYDRATE
     Indication: ASTHMA
  10. OMEPRAZOLE. [Concomitant]
     Active Substance: OMEPRAZOLE
     Indication: PRODUCT USED FOR UNKNOWN INDICATION
     Dates: start: 200905
  11. SYMBICORT [Concomitant]
     Active Substance: BUDESONIDE\FORMOTEROL FUMARATE DIHYDRATE
     Indication: MITE ALLERGY
  12. AERIUS                             /01009701/ [Concomitant]
     Active Substance: EBASTINE
     Indication: MITE ALLERGY
  13. VOGALENE [Concomitant]
     Active Substance: METOPIMAZINE
     Indication: GASTROENTERITIS
  14. AERIUS                             /01009701/ [Concomitant]
     Active Substance: EBASTINE
     Indication: ASTHMA

REACTIONS (35)
  - Bradycardia [Unknown]
  - Vomiting [Recovered/Resolved]
  - Migraine [Recovered/Resolved]
  - Fatigue [Recovering/Resolving]
  - Social avoidant behaviour [Unknown]
  - Insomnia [Not Recovered/Not Resolved]
  - Tinnitus [Recovered/Resolved]
  - Reaction to excipient [Unknown]
  - Weight increased [Not Recovered/Not Resolved]
  - Myalgia [Not Recovered/Not Resolved]
  - Disturbance in attention [Unknown]
  - Dizziness [Unknown]
  - Irritability [Unknown]
  - Malaise [Unknown]
  - Eye disorder [Not Recovered/Not Resolved]
  - Oedema [Unknown]
  - Pain [Unknown]
  - Thyroid mass [Unknown]
  - Apathy [Unknown]
  - Asthenia [Unknown]
  - Intervertebral disc degeneration [Unknown]
  - Loss of personal independence in daily activities [Unknown]
  - Cervical radiculopathy [Unknown]
  - Vertigo [Not Recovered/Not Resolved]
  - Dyspnoea exertional [Not Recovered/Not Resolved]
  - Swelling face [Not Recovered/Not Resolved]
  - Constipation [Unknown]
  - Neck pain [Unknown]
  - Headache [Recovering/Resolving]
  - Arthralgia [Not Recovered/Not Resolved]
  - Alopecia [Not Recovered/Not Resolved]
  - Muscle spasms [Unknown]
  - Back pain [Unknown]
  - Abdominal pain [Unknown]
  - Palpitations [Recovered/Resolved]

NARRATIVE: CASE EVENT DATE: 2017
